FAERS Safety Report 9163985 (Version 1)
Quarter: 2013Q1

REPORT INFORMATION
  Report Type: Spontaneous
  Country: US (occurrence: US)
  Receive Date: 20130314
  Receipt Date: 20130314
  Transmission Date: 20140127
  Serious: No
  Sender: FDA-Public Use
  Company Number: US-009507513-1302USA013592

PATIENT
  Sex: Female

DRUGS (1)
  1. ZIOPTAN [Suspect]
     Indication: GLAUCOMA
     Dosage: 2 DROPS IN EACH EYE IN THE EVENING
     Route: 047
     Dates: start: 201302

REACTIONS (2)
  - Ocular hyperaemia [Not Recovered/Not Resolved]
  - Overdose [Unknown]
